FAERS Safety Report 6599670-1 (Version None)
Quarter: 2010Q1

REPORT INFORMATION
  Report Type: 
  Country: None (occurrence: None)
  Receive Date: 20100224
  Receipt Date: 20100212
  Transmission Date: 20100710
  Serious: Yes (Hospitalization, Other)
  Sender: FDA-Public Use
  Company Number: DE-ELI_LILLY_AND_COMPANY-DE201002003527

PATIENT
  Sex: Female

DRUGS (6)
  1. CYMBALTA [Suspect]
     Dosage: 60 D/F, UNK
  2. CARBAMAZEPINE [Concomitant]
     Dosage: 100 D/F, UNKNOWN
  3. DOXEPIN HCL [Concomitant]
     Dosage: 75 D/F, UNKNOWN
  4. LEVOTHYROXINE SODIUM [Concomitant]
     Dosage: 100 D/F, UNKNOWN
  5. NEXIUM [Concomitant]
     Dosage: 20 MG, UNKNOWN
  6. SEROQUEL [Concomitant]
     Dosage: UNK, UNKNOWN

REACTIONS (4)
  - INTENTIONAL OVERDOSE [None]
  - PSYCHOTIC DISORDER [None]
  - SUICIDE ATTEMPT [None]
  - TACHYCARDIA [None]
